FAERS Safety Report 17649182 (Version 1)
Quarter: 2020Q2

REPORT INFORMATION
  Report Type: Spontaneous
  Country: US (occurrence: US)
  Receive Date: 20200408
  Receipt Date: 20200408
  Transmission Date: 20200713
  Serious: Yes (Hospitalization)
  Sender: FDA-Public Use
  Company Number: None

PATIENT
  Age: 5 Year
  Sex: Female

DRUGS (12)
  1. NARCAN [Concomitant]
     Active Substance: NALOXONE HYDROCHLORIDE
  2. OLANZAPINE. [Concomitant]
     Active Substance: OLANZAPINE
  3. ONDANSETRON [Concomitant]
     Active Substance: ONDANSETRON
  4. MEGESTROL AC [Concomitant]
  5. GABAPENTIN. [Concomitant]
     Active Substance: GABAPENTIN
  6. NIVESTYM [Suspect]
     Active Substance: FILGRASTIM-AAFI
     Indication: RENAL CANCER
     Dosage: ?          OTHER FREQUENCY:AS DIRECTED;OTHER ROUTE:SQ 14D X 21 DAYS CYCLE?
     Dates: start: 20190906
  7. CEFDINIR. [Concomitant]
     Active Substance: CEFDINIR
  8. LIDO/PRILOCN [Concomitant]
  9. OXYCODONE [Concomitant]
     Active Substance: OXYCODONE
  10. POT CHLORIDE [Concomitant]
     Active Substance: POTASSIUM CHLORIDE
  11. BANOPHEN [Concomitant]
     Active Substance: DIPHENHYDRAMINE HYDROCHLORIDE
  12. A-HYDROCORT [Concomitant]
     Active Substance: HYDROCORTISONE SODIUM SUCCINATE

REACTIONS (1)
  - Pyrexia [None]

NARRATIVE: CASE EVENT DATE: 20200401
